FAERS Safety Report 11382981 (Version 4)
Quarter: 2017Q2

REPORT INFORMATION
  Report Type: Spontaneous
  Country: US (occurrence: US)
  Receive Date: 20150814
  Receipt Date: 20170405
  Transmission Date: 20170829
  Serious: Yes (Other)
  Sender: FDA-Public Use
  Company Number: US-PFIZER INC-2015267755

PATIENT
  Age: 83 Year
  Sex: Male
  Weight: 78 kg

DRUGS (13)
  1. XELJANZ [Suspect]
     Active Substance: TOFACITINIB CITRATE
     Dosage: 5 MG, 2X/DAY
     Route: 048
     Dates: start: 20150604
  2. VITAMIN D [Concomitant]
     Active Substance: CHOLECALCIFEROL
     Dosage: 1000 IU, UNK
  3. VITAMIN B12 + FOLIC ACID [Concomitant]
     Dosage: UNK (FOLIC ACID 400 MCG, ^VITAMIN B12 (AS CYANOCOBALAMIN) 500 MCG )
  4. XELJANZ [Suspect]
     Active Substance: TOFACITINIB CITRATE
     Indication: RHEUMATOID ARTHRITIS
     Dosage: 5 MG, 2X/DAY
     Dates: start: 201411
  5. COQ10 [Concomitant]
     Active Substance: UBIDECARENONE
     Dosage: 60 MG, UNK
  6. METHOTREXATE. [Concomitant]
     Active Substance: METHOTREXATE
     Dosage: EVERY OTHER WEEK AND IS ALWAYS TIRED FOR 2-3 DAYS AFTERWARDS
  7. COD LIVER OIL [Concomitant]
     Active Substance: COD LIVER OIL
     Dosage: UNK
  8. AMLODIPINE BESYLATE. [Concomitant]
     Active Substance: AMLODIPINE BESYLATE
     Dosage: 5 MG, UNK
  9. XELJANZ [Suspect]
     Active Substance: TOFACITINIB CITRATE
     Dosage: 5 MG, 2X/DAY
     Route: 048
     Dates: end: 20170306
  10. AMLODIPINE [Concomitant]
     Active Substance: AMLODIPINE BESYLATE
     Dosage: UNK
  11. NORVASC [Concomitant]
     Active Substance: AMLODIPINE BESYLATE
     Dosage: 5 MG, UNK
  12. XELJANZ [Suspect]
     Active Substance: TOFACITINIB CITRATE
     Dosage: 5 MG, 2X/DAY
     Route: 048
     Dates: start: 20170317
  13. XELJANZ [Suspect]
     Active Substance: TOFACITINIB CITRATE
     Dosage: 5 MG, 2X/DAY
     Dates: start: 201506

REACTIONS (12)
  - Sleep disorder [Unknown]
  - Decreased appetite [Unknown]
  - Abdominal discomfort [Unknown]
  - Sinus disorder [Unknown]
  - Cough [Unknown]
  - Rheumatoid arthritis [Unknown]
  - Fatigue [Unknown]
  - Sinusitis [Unknown]
  - Eating disorder [Unknown]
  - Fatigue [Unknown]
  - Malaise [Unknown]
  - Condition aggravated [Unknown]

NARRATIVE: CASE EVENT DATE: 20151207
